FAERS Safety Report 8857795 (Version 1)
Quarter: 2012Q4

REPORT INFORMATION
  Report Type: 
  Country: US (occurrence: US)
  Receive Date: 20121024
  Receipt Date: 20121024
  Transmission Date: 20130627
  Serious: No
  Sender: FDA-Public Use
  Company Number: US-009507513-1210USA009860

PATIENT
  Age: 59 Year
  Sex: Female

DRUGS (1)
  1. ZETIA [Suspect]
     Indication: BLOOD CHOLESTEROL INCREASED
     Dosage: 10 mg, qd
     Route: 048
     Dates: start: 201207, end: 20121006

REACTIONS (3)
  - Flatulence [Recovered/Resolved]
  - Myalgia [Not Recovered/Not Resolved]
  - Tenderness [Not Recovered/Not Resolved]
